FAERS Safety Report 25544460 (Version 1)
Quarter: 2025Q3

REPORT INFORMATION
  Report Type: Report from Study
  Country: JP (occurrence: JP)
  Receive Date: 20250711
  Receipt Date: 20250711
  Transmission Date: 20251021
  Serious: Yes (Other)
  Sender: MERZ
  Company Number: JP-teijin-202502616_XEO_P_1

PATIENT

DRUGS (2)
  1. XEOMIN [Suspect]
     Active Substance: INCOBOTULINUMTOXINA
     Indication: Muscle spasticity
     Route: 030
     Dates: start: 20240926, end: 20240926
  2. XEOMIN [Suspect]
     Active Substance: INCOBOTULINUMTOXINA
     Route: 030
     Dates: start: 202505, end: 202505

REACTIONS (7)
  - Spinal cord injury cervical [Recovering/Resolving]
  - Aspiration [Recovered/Resolved]
  - Gait disturbance [Recovered/Resolved]
  - Dyslalia [Recovered/Resolved]
  - Malaise [Recovered/Resolved]
  - Fall [Not Recovered/Not Resolved]
  - Fall [Recovered/Resolved]

NARRATIVE: CASE EVENT DATE: 20250301
